FAERS Safety Report 10270137 (Version 1)
Quarter: 2014Q2

REPORT INFORMATION
  Report Type: Spontaneous
  Country: GB (occurrence: None)
  Receive Date: 20140626
  Receipt Date: 20140626
  Transmission Date: 20141212
  Serious: Yes (Congenital Anomaly, Other)
  Sender: FDA-Public Use
  Company Number: AUR-APL-2014-06611

PATIENT
  Age: 1 Hour
  Sex: 0

DRUGS (1)
  1. CITALOPRAM 40MG (CITALOPRAM) UNKNOWN, 40MG [Suspect]
     Indication: PRODUCT USED FOR UNKNOWN INDICATION
     Dosage: 40 MG, UNK, TRANSPLACENTAL?
     Route: 064

REACTIONS (4)
  - Foetal exposure during pregnancy [None]
  - Irritability [None]
  - Drug withdrawal syndrome neonatal [None]
  - Foetal exposure during pregnancy [None]
